FAERS Safety Report 15791138 (Version 2)
Quarter: 2019Q1

REPORT INFORMATION
  Report Type: Spontaneous
  Country: JP (occurrence: JP)
  Receive Date: 20190104
  Receipt Date: 20190111
  Transmission Date: 20190417
  Serious: Yes (Death, Life-Threatening, Hospitalization, Other)
  Sender: FDA-Public Use
  Company Number: JP-PFIZER INC-2019005280

PATIENT
  Age: 78 Year
  Sex: Male

DRUGS (15)
  1. PREDNISOLONE. [Suspect]
     Active Substance: PREDNISOLONE
     Indication: INTERSTITIAL LUNG DISEASE
     Dosage: 20 MG, 1X/DAY (APPROXIMATELY 0.5MG/KG)
  2. CICLOSPORIN [Suspect]
     Active Substance: CYCLOSPORINE
     Indication: INTERSTITIAL LUNG DISEASE
     Dosage: 150 MG, 1X/DAY
  3. AMPICILLIN SODIUM/SULBACTAM SODIUM [Concomitant]
     Indication: BRONCHOPULMONARY ASPERGILLOSIS
     Dosage: 6 G, UNK
  4. METHYLPREDNISOLONE. [Suspect]
     Active Substance: METHYLPREDNISOLONE
     Indication: INTERSTITIAL LUNG DISEASE
  5. AMPHOTERICIN B. [Concomitant]
     Active Substance: AMPHOTERICIN B
     Indication: BRONCHOPULMONARY ASPERGILLOSIS
     Dosage: 300 MG, UNK (LIPOSOMAL)
  6. GANCICLOVIR. [Concomitant]
     Active Substance: GANCICLOVIR
     Indication: BRONCHOPULMONARY ASPERGILLOSIS
     Dosage: 300 MG, UNK
  7. CASPOFUNGIN [Concomitant]
     Active Substance: CASPOFUNGIN
     Indication: BRONCHOPULMONARY ASPERGILLOSIS
     Dosage: 50 MG, UNK
  8. CICLOSPORIN [Suspect]
     Active Substance: CYCLOSPORINE
     Indication: INTERSTITIAL LUNG DISEASE
     Dosage: 100 MG, 1X/DAY
  9. MICAFUNGIN SODIUM [Concomitant]
     Active Substance: MICAFUNGIN SODIUM
     Indication: BRONCHOPULMONARY ASPERGILLOSIS
     Dosage: 150 MG, UNK
  10. PREDNISOLONE. [Suspect]
     Active Substance: PREDNISOLONE
     Dosage: TAPERED OVER THE FOLLOWING TWO YEARS
  11. PREDNISOLONE. [Suspect]
     Active Substance: PREDNISOLONE
     Indication: INTERSTITIAL LUNG DISEASE
     Dosage: 30 MG, 1X/DAY
  12. METHYLPREDNISOLONE. [Suspect]
     Active Substance: METHYLPREDNISOLONE
     Indication: INTERSTITIAL LUNG DISEASE
     Dosage: 500 MG, 1X/DAY
  13. PREDNISOLONE. [Suspect]
     Active Substance: PREDNISOLONE
     Dosage: 25 MG, 1X/DAY
  14. MEROPENEM. [Concomitant]
     Active Substance: MEROPENEM
     Indication: BRONCHOPULMONARY ASPERGILLOSIS
     Dosage: 1 G, UNK
  15. CICLOSPORIN [Suspect]
     Active Substance: CYCLOSPORINE
     Dosage: 60 MG, 1X/DAY

REACTIONS (4)
  - Steroid diabetes [Unknown]
  - Pulmonary necrosis [Unknown]
  - Bronchopulmonary aspergillosis [Fatal]
  - Respiratory failure [Fatal]
